FAERS Safety Report 15341242 (Version 2)
Quarter: 2020Q3

REPORT INFORMATION
  Report Type: Spontaneous
  Country: TH (occurrence: TH)
  Receive Date: 20180831
  Receipt Date: 20181011
  Transmission Date: 20201105
  Serious: Yes (Death)
  Sender: FDA-Public Use
  Company Number: PHHY2018TH080665

PATIENT
  Age: 75 Year
  Sex: Male

DRUGS (1)
  1. ZYKADIA [Suspect]
     Active Substance: CERITINIB
     Indication: NON-SMALL CELL LUNG CANCER
     Dosage: 750 MG, QD
     Route: 065
     Dates: start: 20170906

REACTIONS (4)
  - Malignant neoplasm progression [Fatal]
  - Pulmonary mass [Fatal]
  - Metastases to bone [Fatal]
  - Non-small cell lung cancer [Fatal]
